FAERS Safety Report 21617122 (Version 1)
Quarter: 2022Q4

REPORT INFORMATION
  Report Type: Spontaneous
  Country: PE (occurrence: None)
  Receive Date: 20221118
  Receipt Date: 20221118
  Transmission Date: 20230113
  Serious: Yes (Death, Hospitalization)
  Sender: FDA-Public Use
  Company Number: 2022A382901

PATIENT

DRUGS (1)
  1. ACALABRUTINIB [Suspect]
     Active Substance: ACALABRUTINIB
     Indication: Chronic lymphocytic leukaemia
     Dosage: UNKNOWN UNKNOWN
     Route: 048

REACTIONS (1)
  - COVID-19 [Fatal]
